FAERS Safety Report 23833355 (Version 1)
Quarter: 2024Q2

REPORT INFORMATION
  Report Type: Spontaneous
  Country: US (occurrence: US)
  Receive Date: 20240508
  Receipt Date: 20240508
  Transmission Date: 20240716
  Serious: No
  Sender: FDA-Public Use
  Company Number: US-PFIZER INC-202400102597

PATIENT
  Age: 74 Year
  Sex: Male

DRUGS (1)
  1. PAXLOVID [Suspect]
     Active Substance: NIRMATRELVIR\RITONAVIR
     Indication: COVID-19 treatment
     Dosage: UNK
     Dates: start: 20240426, end: 20240430

REACTIONS (5)
  - Malaise [Not Recovered/Not Resolved]
  - Pyrexia [Not Recovered/Not Resolved]
  - Nasal congestion [Not Recovered/Not Resolved]
  - Cough [Not Recovered/Not Resolved]
  - Pain [Not Recovered/Not Resolved]

NARRATIVE: CASE EVENT DATE: 20240506
